FAERS Safety Report 21925262 (Version 1)
Quarter: 2023Q1

REPORT INFORMATION
  Report Type: Spontaneous
  Country: FR (occurrence: FR)
  Receive Date: 20230130
  Receipt Date: 20230130
  Transmission Date: 20230418
  Serious: Yes (Other)
  Sender: FDA-Public Use
  Company Number: FR-STERISCIENCE B.V.-2023-ST-000266

PATIENT
  Age: 43 Year
  Sex: Male

DRUGS (2)
  1. PIPERACILLIN SODIUM\TAZOBACTAM SODIUM [Suspect]
     Active Substance: PIPERACILLIN SODIUM\TAZOBACTAM SODIUM
     Indication: Lemierre syndrome
     Dosage: 12 GRAM, QD
     Route: 051
  2. AMOXICILLIN\CLAVULANIC ACID [Suspect]
     Active Substance: AMOXICILLIN\CLAVULANIC ACID
     Indication: Lemierre syndrome
     Dosage: 3 GRAM, QD
     Route: 048

REACTIONS (2)
  - Jarisch-Herxheimer reaction [None]
  - Paradoxical drug reaction [None]
